FAERS Safety Report 6076849-9 (Version None)
Quarter: 2009Q1

REPORT INFORMATION
  Report Type: 
  Country: None (occurrence: None)
  Receive Date: 20090213
  Receipt Date: 20090202
  Transmission Date: 20090719
  Serious: Yes (Life-Threatening)
  Sender: FDA-Public Use
  Company Number: US-ELI_LILLY_AND_COMPANY-US200812002492

PATIENT
  Age: 94 Year
  Sex: Male
  Weight: 72.562 kg

DRUGS (2)
  1. CYMBALTA [Suspect]
     Indication: POST HERPETIC NEURALGIA
     Dosage: 30 MG, UNKNOWN
     Dates: start: 20080601, end: 20080601
  2. CYMBALTA [Suspect]
     Dosage: 30 MG, UNKNOWN
     Dates: start: 20080601, end: 20080601

REACTIONS (2)
  - HYPOTENSION [None]
  - MOBILITY DECREASED [None]
